FAERS Safety Report 24162371 (Version 2)
Quarter: 2024Q3

REPORT INFORMATION
  Report Type: Report from Study
  Country: JP (occurrence: JP)
  Receive Date: 20240801
  Receipt Date: 20240813
  Transmission Date: 20241016
  Serious: Yes (Disabling)
  Sender: EISAI
  Company Number: JP-Eisai-202405229_LEN-HCC_P_1

PATIENT
  Age: 72 Year
  Sex: Male
  Weight: 73.8 kg

DRUGS (4)
  1. LENVATINIB [Suspect]
     Active Substance: LENVATINIB
     Indication: Hepatocellular carcinoma
     Dosage: FREQUENCY: UNKNOWN
     Route: 048
     Dates: start: 20240606, end: 20240702
  2. CISPLATIN [Concomitant]
     Active Substance: CISPLATIN
     Indication: Hepatocellular carcinoma
     Route: 013
     Dates: start: 20240606
  3. LEVOTHYROXINE [Concomitant]
     Active Substance: LEVOTHYROXINE\LEVOTHYROXINE SODIUM
     Indication: Hypothyroidism
     Route: 048
     Dates: start: 20240621
  4. AMLODIPINE [Concomitant]
     Active Substance: AMLODIPINE BESYLATE
     Indication: Hypertension
     Route: 048
     Dates: start: 20240607, end: 20240716

REACTIONS (1)
  - Blood creatine phosphokinase increased [Recovered/Resolved with Sequelae]

NARRATIVE: CASE EVENT DATE: 20240705
